FAERS Safety Report 8489087-7 (Version None)
Quarter: 2012Q3

REPORT INFORMATION
  Report Type: 
  Country: None (occurrence: None)
  Receive Date: 20120705
  Receipt Date: 20120615
  Transmission Date: 20120928
  Serious: Yes (Hospitalization)
  Sender: FDA-Public Use
  Company Number: FR-PFIZER INC-2012141023

PATIENT
  Sex: Female

DRUGS (12)
  1. AMISULPRIDE [Suspect]
     Indication: HALLUCINATION
     Dosage: 25 MG, 2X/DAY
     Route: 048
     Dates: start: 19900101, end: 20120120
  2. TRIHEXYPHENIDYL HYDROCHLORIDE [Concomitant]
  3. ALPRAZOLAM [Suspect]
     Dosage: UNK
     Route: 048
     Dates: start: 19900101, end: 20120202
  4. ZOLPIDEM [Concomitant]
     Dosage: UNK
     Route: 048
     Dates: start: 19900101
  5. ACEBUTOLOL [Concomitant]
  6. ACETAMINOPHEN [Concomitant]
  7. LOSARTAN [Concomitant]
  8. CITALOPRAM [Concomitant]
  9. TERCIAN [Suspect]
     Indication: HALLUCINATION
     Dosage: 0.5 DF, 1X/DAY
     Route: 048
     Dates: start: 19900101, end: 20120120
  10. PANTOPRAZOLE [Concomitant]
  11. ARESTAL [Concomitant]
  12. ALUMINUM HYDROXIDE AND MAGNESIUM TRISILICATE [Concomitant]

REACTIONS (2)
  - SLEEP APNOEA SYNDROME [None]
  - CONDITION AGGRAVATED [None]
